FAERS Safety Report 7420564-3 (Version None)
Quarter: 2011Q2

REPORT INFORMATION
  Report Type: 
  Country: None (occurrence: None)
  Receive Date: 20110418
  Receipt Date: 20110414
  Transmission Date: 20111010
  Serious: Yes (Other)
  Sender: FDA-Public Use
  Company Number: US-PFIZER INC-2011082219

PATIENT
  Sex: Male

DRUGS (1)
  1. CHANTIX [Suspect]
     Dosage: UNK
     Dates: start: 20071201

REACTIONS (4)
  - DEPRESSION [None]
  - ANXIETY [None]
  - PSYCHOTIC DISORDER [None]
  - SUICIDAL IDEATION [None]
